FAERS Safety Report 23831241 (Version 2)
Quarter: 2024Q2

REPORT INFORMATION
  Report Type: Other
  Country: CA (occurrence: CA)
  Receive Date: 20240508
  Receipt Date: 20240603
  Transmission Date: 20240716
  Serious: Yes (Other)
  Sender: FDA-Public Use
  Company Number: CA-GLENMARK PHARMACEUTICALS-2024GMK090517

PATIENT

DRUGS (19)
  1. GABAPENTIN [Suspect]
     Active Substance: GABAPENTIN
     Indication: Nystagmus
     Dosage: UNK
     Route: 065
  2. GABAPENTIN [Suspect]
     Active Substance: GABAPENTIN
     Indication: Migraine
     Dosage: 1500 MILLIGRAM
     Route: 065
  3. GABAPENTIN [Suspect]
     Active Substance: GABAPENTIN
     Indication: Neurotoxicity
     Dosage: 1500 MILLIGRAM
     Route: 065
  4. TOPIRAMATE [Suspect]
     Active Substance: TOPIRAMATE
     Indication: Migraine
     Dosage: 100 MILLIGRAM
     Route: 065
  5. TOPIRAMATE [Suspect]
     Active Substance: TOPIRAMATE
     Dosage: 100 MILLIGRAM
     Route: 065
  6. TOPIRAMATE [Suspect]
     Active Substance: TOPIRAMATE
     Dosage: 100 MILLIGRAM
     Route: 065
  7. BACLOFEN [Suspect]
     Active Substance: BACLOFEN
     Indication: Nystagmus
     Dosage: UNK
     Route: 065
  8. BACLOFEN [Suspect]
     Active Substance: BACLOFEN
     Indication: Neurotoxicity
  9. CLONAZEPAM [Suspect]
     Active Substance: CLONAZEPAM
     Indication: Nystagmus
     Dosage: UNK
     Route: 065
  10. CLONAZEPAM [Suspect]
     Active Substance: CLONAZEPAM
     Indication: Neurotoxicity
  11. DALFAMPRIDINE [Suspect]
     Active Substance: DALFAMPRIDINE
     Indication: Nystagmus
     Dosage: UNK
     Route: 065
  12. DALFAMPRIDINE [Suspect]
     Active Substance: DALFAMPRIDINE
     Indication: Neurotoxicity
  13. MEMANTINE [Suspect]
     Active Substance: MEMANTINE
     Indication: Nystagmus
     Dosage: UNK
     Route: 065
  14. MEMANTINE [Suspect]
     Active Substance: MEMANTINE
     Indication: Neurotoxicity
  15. METRONIDAZOLE SODIUM [Suspect]
     Active Substance: METRONIDAZOLE SODIUM
     Indication: Product used for unknown indication
     Dosage: UNK
     Route: 065
  16. DALFAMPRIDINE [Suspect]
     Active Substance: DALFAMPRIDINE
     Indication: Nystagmus
     Route: 065
  17. AMITRIPTYLINE [Concomitant]
     Active Substance: AMITRIPTYLINE
     Indication: Product used for unknown indication
     Dosage: 40 MILLIGRAM
     Route: 065
  18. AMITRIPTYLINE [Concomitant]
     Active Substance: AMITRIPTYLINE
     Dosage: 40 MILLIGRAM
     Route: 065
  19. AMITRIPTYLINE [Concomitant]
     Active Substance: AMITRIPTYLINE
     Dosage: 40 MILLIGRAM
     Route: 065

REACTIONS (6)
  - Neurotoxicity [Unknown]
  - Drug ineffective [Unknown]
  - Drug ineffective for unapproved indication [Unknown]
  - Off label use [Unknown]
  - Migraine [Unknown]
  - Product use in unapproved indication [Unknown]
